FAERS Safety Report 5188506-1 (Version None)
Quarter: 2006Q4

REPORT INFORMATION
  Report Type: 
  Country: None (occurrence: None)
  Receive Date: 20061214
  Receipt Date: 20061207
  Transmission Date: 20070319
  Serious: Yes (Hospitalization)
  Sender: FDA-Public Use
  Company Number: 2006PV026532

PATIENT
  Age: 75 Year
  Sex: Male
  Weight: 158.759 kg

DRUGS (3)
  1. BYETTA [Suspect]
     Indication: DIABETES MELLITUS NON-INSULIN-DEPENDENT
     Dosage: 10 MCG; BID; SC
     Route: 058
     Dates: end: 20061130
  2. ACTOS [Concomitant]
  3. CELEBREX [Concomitant]

REACTIONS (5)
  - DYSPNOEA EXERTIONAL [None]
  - INJECTION SITE BRUISING [None]
  - POLLAKIURIA [None]
  - SOMNOLENCE [None]
  - WEIGHT INCREASED [None]
